FAERS Safety Report 8784360 (Version 7)
Quarter: 2015Q4

REPORT INFORMATION
  Report Type: Spontaneous
  Country: US (occurrence: US)
  Receive Date: 20120913
  Receipt Date: 20151222
  Transmission Date: 20160305
  Serious: Yes (Hospitalization, Disabling, Other)
  Sender: FDA-Public Use
  Company Number: US-009507513-1209USA001507

PATIENT
  Sex: Female

DRUGS (6)
  1. FOSAMAX [Suspect]
     Active Substance: ALENDRONATE SODIUM
     Indication: OSTEOPENIA
     Dosage: 35 MG, QW
     Route: 048
     Dates: start: 20020225, end: 20080324
  2. ALENDRONATE SODIUM. [Suspect]
     Active Substance: ALENDRONATE SODIUM
     Indication: OSTEOPENIA
     Route: 048
  3. ALENDRONATE SODIUM. [Suspect]
     Active Substance: ALENDRONATE SODIUM
     Indication: OSTEOPENIA
     Dosage: 35 MG, QW
     Route: 048
     Dates: start: 20080324, end: 20090810
  4. LEVOTHYROXINE SODIUM. [Concomitant]
     Active Substance: LEVOTHYROXINE SODIUM
     Indication: HYPOTHYROIDISM
     Dosage: UNK
     Route: 065
     Dates: start: 2000
  5. ALENDRONATE SODIUM. [Suspect]
     Active Substance: ALENDRONATE SODIUM
     Indication: OSTEOPOROSIS
     Dosage: 70 MG, QW
     Route: 048
     Dates: start: 20090810, end: 20100428
  6. FOSAMAX [Suspect]
     Active Substance: ALENDRONATE SODIUM
     Indication: OSTEOPOROSIS

REACTIONS (26)
  - Vaginitis bacterial [Unknown]
  - Vitamin D deficiency [Unknown]
  - Hot flush [Unknown]
  - Arthralgia [Unknown]
  - Drug ineffective [Unknown]
  - Ligament sprain [Unknown]
  - Nephrolithiasis [Unknown]
  - Stress [Recovering/Resolving]
  - Cervicitis [Unknown]
  - Pain in extremity [Recovering/Resolving]
  - Headache [Unknown]
  - Haemorrhagic anaemia [Recovered/Resolved]
  - Tooth disorder [Unknown]
  - Pain in extremity [Recovering/Resolving]
  - Femur fracture [Recovering/Resolving]
  - Fallopian tube disorder [Unknown]
  - Musculoskeletal pain [Unknown]
  - Impaired healing [Not Recovered/Not Resolved]
  - Osteoporosis [Unknown]
  - Fibrocystic breast disease [Unknown]
  - Mycotic allergy [Unknown]
  - Pain in extremity [Recovering/Resolving]
  - Procedural nausea [Unknown]
  - Hysterectomy [Unknown]
  - Femur fracture [Recovered/Resolved]
  - Femur fracture [Recovering/Resolving]

NARRATIVE: CASE EVENT DATE: 2002
